FAERS Safety Report 11874040 (Version 1)
Quarter: 2015Q4

REPORT INFORMATION
  Report Type: Report from Study
  Country: US (occurrence: US)
  Receive Date: 20151229
  Receipt Date: 20151229
  Transmission Date: 20160305
  Serious: No
  Sender: FDA-Public Use
  Company Number: PHEH2014US011989

PATIENT
  Sex: Female
  Weight: 81 kg

DRUGS (16)
  1. NORVASC [Concomitant]
     Active Substance: AMLODIPINE BESYLATE
     Indication: HYPERTENSION
     Route: 065
  2. MIRALAX [Concomitant]
     Active Substance: POLYETHYLENE GLYCOL 3350
     Indication: CONSTIPATION
     Route: 065
  3. BETAMETHASONE VALERATE. [Concomitant]
     Active Substance: BETAMETHASONE VALERATE
     Indication: ECZEMA
     Route: 065
  4. NYSTATIN. [Concomitant]
     Active Substance: NYSTATIN
     Indication: ANAL PRURITUS
     Route: 065
  5. CHLORTRIMETON [Concomitant]
     Active Substance: CHLORPHENIRAMINE MALEATE
     Indication: ECZEMA
     Route: 065
  6. NEORAL [Suspect]
     Active Substance: CYCLOSPORINE
     Dosage: 25 MG, Q12H
     Route: 048
  7. SYNTHROID [Concomitant]
     Active Substance: LEVOTHYROXINE SODIUM
     Indication: THYROID DISORDER
     Route: 065
  8. CLOBETASOL PROPRIONATE [Concomitant]
     Active Substance: CLOBETASOL PROPIONATE
     Indication: PRURITUS
  9. PREVACID [Concomitant]
     Active Substance: LANSOPRAZOLE
     Indication: GASTROOESOPHAGEAL REFLUX DISEASE
     Route: 065
  10. MIRALAX [Concomitant]
     Active Substance: POLYETHYLENE GLYCOL 3350
     Indication: PRESYNCOPE
  11. CLOBETASOL PROPRIONATE [Concomitant]
     Active Substance: CLOBETASOL PROPIONATE
     Indication: ECZEMA INFECTED
     Dosage: UNK
     Route: 065
  12. NEORAL [Suspect]
     Active Substance: CYCLOSPORINE
     Indication: LIVER TRANSPLANT
     Dosage: 50 MG, Q12H
     Route: 048
  13. ATIVAN [Concomitant]
     Active Substance: LORAZEPAM
     Indication: PALPITATIONS
     Route: 065
  14. CLONIDINE. [Concomitant]
     Active Substance: CLONIDINE
     Indication: HYPERTENSION
     Route: 065
  15. ATIVAN [Concomitant]
     Active Substance: LORAZEPAM
     Indication: ANXIETY
  16. TRIAMCINOLONE ACETONIDE. [Concomitant]
     Active Substance: TRIAMCINOLONE ACETONIDE
     Indication: ANAL PRURITUS
     Route: 065

REACTIONS (3)
  - Blood uric acid increased [Unknown]
  - Nervous system disorder [Unknown]
  - Rash generalised [Unknown]

NARRATIVE: CASE EVENT DATE: 2013
